FAERS Safety Report 5917582-0 (Version None)
Quarter: 2008Q4

REPORT INFORMATION
  Report Type: 
  Country: None (occurrence: None)
  Receive Date: 20081010
  Receipt Date: 20081010
  Transmission Date: 20090506
  Serious: Yes (Hospitalization)
  Sender: FDA-Public Use
  Company Number: None

PATIENT
  Sex: Male
  Weight: 82 kg

DRUGS (2)
  1. CISPLATIN [Suspect]
     Dosage: 158 MG
  2. ETOPOSIDE [Suspect]
     Dosage: 600 MG

REACTIONS (10)
  - ATRIAL FIBRILLATION [None]
  - CHEST PAIN [None]
  - DEEP VEIN THROMBOSIS [None]
  - DYSPNOEA [None]
  - EMBOLISM [None]
  - FATIGUE [None]
  - HYPOKALAEMIA [None]
  - JOINT SWELLING [None]
  - PYREXIA [None]
  - VOMITING [None]
